FAERS Safety Report 4466291-6 (Version None)
Quarter: 2004Q4

REPORT INFORMATION
  Report Type: 
  Country: None (occurrence: None)
  Receive Date: 20041005
  Receipt Date: 20040923
  Transmission Date: 20050328
  Serious: Yes (Hospitalization, Other)
  Sender: FDA-Public Use
  Company Number: PHEH2004US10318

PATIENT
  Age: 60 Year
  Sex: Male

DRUGS (4)
  1. PAMIDRONATE DISODIUM [Suspect]
     Dosage: 90 MG, UNK
     Dates: start: 20010101, end: 20030101
  2. ZOLEDRONATE [Suspect]
     Dates: start: 20030101
  3. VINCRISTINE + ADRIAMYCIN + DEXAMETHASONE [Concomitant]
  4. MELPHALAN [Concomitant]

REACTIONS (7)
  - ASEPTIC NECROSIS BONE [None]
  - BONE EROSION [None]
  - HIP ARTHROPLASTY [None]
  - IMPAIRED HEALING [None]
  - ORAL SURGERY [None]
  - OSTEONECROSIS [None]
  - WOUND DEBRIDEMENT [None]
